FAERS Safety Report 26145414 (Version 1)
Quarter: 2025Q4

REPORT INFORMATION
  Report Type: Spontaneous
  Country: US (occurrence: None)
  Receive Date: 20251211
  Receipt Date: 20251211
  Transmission Date: 20260118
  Serious: Yes (Hospitalization)
  Sender: FDA-CTU
  Company Number: None

PATIENT
  Age: 75 Year
  Sex: Female

DRUGS (1)
  1. LENALIDOMIDE [Suspect]
     Active Substance: LENALIDOMIDE
     Dosage: FREQUENCY : DAILY;

REACTIONS (6)
  - Skin discolouration [None]
  - Skin burning sensation [None]
  - Diarrhoea [None]
  - Vomiting [None]
  - Stomatitis [None]
  - Skin exfoliation [None]
